FAERS Safety Report 20408086 (Version 1)
Quarter: 2022Q1

REPORT INFORMATION
  Report Type: Spontaneous
  Country: NL (occurrence: NL)
  Receive Date: 20220201
  Receipt Date: 20220201
  Transmission Date: 20220423
  Serious: Yes (Hospitalization, Other)
  Sender: FDA-Public Use
  Company Number: NL-SA-SAC20210423000031

PATIENT
  Age: 32 Year
  Sex: Female
  Weight: 83 kg

DRUGS (9)
  1. ETHINYL ESTRADIOL\LEVONORGESTREL [Suspect]
     Active Substance: ETHINYL ESTRADIOL\LEVONORGESTREL
     Indication: Endometriosis
     Route: 065
  2. TERIFLUNOMIDE [Suspect]
     Active Substance: TERIFLUNOMIDE
     Indication: Relapsing-remitting multiple sclerosis
     Dosage: 14 MILLIGRAM DAILY;
     Route: 048
     Dates: start: 20210127, end: 2021
  3. TERIFLUNOMIDE [Suspect]
     Active Substance: TERIFLUNOMIDE
     Dosage: 14 MILLIGRAM DAILY;
     Route: 048
     Dates: start: 20210210
  4. MELOXICAM [Concomitant]
     Active Substance: MELOXICAM
  5. ELIQUIS [Concomitant]
     Active Substance: APIXABAN
     Indication: Anticoagulant therapy
  6. OMEPRAZOLE [Concomitant]
     Active Substance: OMEPRAZOLE
  7. ZARELLE [Concomitant]
     Route: 065
  8. ALBUTEROL [Concomitant]
     Active Substance: ALBUTEROL
     Route: 065
  9. SALBUTAM [Concomitant]
     Route: 065

REACTIONS (15)
  - Deep vein thrombosis [Recovering/Resolving]
  - Atopic keratoconjunctivitis [Unknown]
  - Toxicity to various agents [Recovered/Resolved]
  - Multiple sclerosis pseudo relapse [Not Recovered/Not Resolved]
  - Gait disturbance [Recovering/Resolving]
  - Alopecia [Recovering/Resolving]
  - Fear of injection [Not Recovered/Not Resolved]
  - Sensory disturbance [Recovering/Resolving]
  - Paraesthesia [Recovering/Resolving]
  - Cough [Recovering/Resolving]
  - Hepatic enzyme abnormal [Recovering/Resolving]
  - Pyrexia [Recovered/Resolved]
  - Bronchitis [Recovering/Resolving]
  - Nasopharyngitis [Recovering/Resolving]
  - Condition aggravated [Recovered/Resolved]

NARRATIVE: CASE EVENT DATE: 20210101
